FAERS Safety Report 6686982-6 (Version None)
Quarter: 2010Q2

REPORT INFORMATION
  Report Type: 
  Country: None (occurrence: None)
  Receive Date: 20100419
  Receipt Date: 20100408
  Transmission Date: 20101027
  Serious: Yes (Death, Other)
  Sender: FDA-Public Use
  Company Number: CZ-PFIZER INC-2010044448

PATIENT
  Age: 56 Year
  Sex: Female

DRUGS (2)
  1. SUTENT [Suspect]
     Indication: RENAL CELL CARCINOMA
     Dosage: 50 MG, 4 WEEKS ON, 2 WEEKS OFF
     Dates: start: 20090901
  2. SUTENT [Suspect]
     Dosage: 37.5 MG, 1X/DAY 4 WEEKS ON, 2 WEEKS OFF
     Dates: end: 20100201

REACTIONS (7)
  - BLOOD BILIRUBIN INCREASED [None]
  - DEATH [None]
  - PALMAR-PLANTAR ERYTHRODYSAESTHESIA SYNDROME [None]
  - PNEUMONIA [None]
  - THROMBOCYTOPENIA [None]
  - THYROID DISORDER [None]
  - TRANSAMINASES INCREASED [None]
